FAERS Safety Report 7672181-8 (Version None)
Quarter: 2011Q3

REPORT INFORMATION
  Report Type: 
  Country: None (occurrence: None)
  Receive Date: 20110809
  Receipt Date: 20110803
  Transmission Date: 20111222
  Serious: Yes (Other)
  Sender: FDA-Public Use
  Company Number: PHHY2011FR70182

PATIENT
  Sex: Female

DRUGS (11)
  1. STRUCTUM [Concomitant]
     Dosage: UNK UKN, UNK
  2. ACETAMINOPHEN [Concomitant]
     Indication: BACK PAIN
     Dosage: UNK UKN, UNK
     Dates: start: 20110530
  3. SEREVENT [Concomitant]
     Dosage: UNK UKN, UNK
  4. IRBESARTAN [Concomitant]
     Dosage: UNK UKN, UNK
  5. LEVOTHYROXINE SODIUM [Concomitant]
     Dosage: UNK UKN, UNK
  6. PULMICORT [Concomitant]
     Dosage: UNK UKN, UNK
  7. VOLTAREN [Suspect]
     Indication: BACK PAIN
     Dosage: UNK UKN, UNK
     Route: 048
     Dates: start: 20110530, end: 20110617
  8. MIOREL [Suspect]
     Indication: BACK PAIN
     Dosage: UNK UKN, UNK
     Route: 048
     Dates: start: 20110530, end: 20110617
  9. EBASTINE [Concomitant]
     Dosage: UNK UKN, UNK
  10. OXEOL [Concomitant]
     Dosage: UNK UKN, UNK
  11. RANITIDINE HCL [Concomitant]
     Dosage: UNK UKN, UNK

REACTIONS (8)
  - HEPATIC STEATOSIS [None]
  - LEUKOCYTOCLASTIC VASCULITIS [None]
  - CHOLELITHIASIS [None]
  - CUTANEOUS VASCULITIS [None]
  - PURPURA [None]
  - VASCULAR PURPURA [None]
  - SKIN LESION [None]
  - PROTEINURIA [None]
